FAERS Safety Report 8122955-4 (Version None)
Quarter: 2012Q1

REPORT INFORMATION
  Report Type: 
  Country: None (occurrence: None)
  Receive Date: 20120208
  Receipt Date: 20120202
  Transmission Date: 20120608
  Serious: Yes (Other)
  Sender: FDA-Public Use
  Company Number: GB-ABBOTT-11P-167-0887202-00

PATIENT
  Age: 69 Year
  Sex: Female

DRUGS (10)
  1. PREDNISOLONE [Suspect]
     Indication: PRODUCT USED FOR UNKNOWN INDICATION
     Route: 065
     Dates: start: 20111024
  2. PREDNISOLONE [Suspect]
     Dates: start: 20111026
  3. CLARITHROMYCIN [Suspect]
     Indication: RESPIRATORY TRACT INFECTION
     Route: 065
     Dates: start: 20111017
  4. CLARITHROMYCIN [Suspect]
     Dates: start: 20111111
  5. FLUTICASONE PROPIONATE/SALMETEROL [Suspect]
  6. PREDNISOLONE [Suspect]
     Dates: start: 20111111
  7. FLUTICASONE PROPIONATE/SALMETEROL [Suspect]
     Indication: ASTHMA
     Dosage: 125 EVOHALER
     Dates: start: 20110908
  8. FOSTAIR [Concomitant]
     Indication: PRODUCT USED FOR UNKNOWN INDICATION
  9. CARBOCISTEINE [Concomitant]
     Indication: PRODUCT USED FOR UNKNOWN INDICATION
     Dates: start: 20111209
  10. AZITHROMYCIN [Suspect]
     Indication: RESPIRATORY TRACT INFECTION
     Route: 065
     Dates: start: 20111024

REACTIONS (6)
  - DYSPNOEA [None]
  - CONDITION AGGRAVATED [None]
  - DRUG INEFFECTIVE [None]
  - SYNCOPE [None]
  - RESPIRATORY TRACT INFECTION FUNGAL [None]
  - ORAL CANDIDIASIS [None]
